FAERS Safety Report 24107862 (Version 1)
Quarter: 2024Q3

REPORT INFORMATION
  Report Type: Report from Study
  Country: US (occurrence: None)
  Receive Date: 20240718
  Receipt Date: 20240718
  Transmission Date: 20241016
  Serious: Yes (Other)
  Sender: ASTRAZENECA
  Company Number: 2020SF08670

PATIENT
  Sex: Male

DRUGS (1)
  1. LYNPARZA [Suspect]
     Active Substance: OLAPARIB
     Indication: Pancreatic carcinoma
     Route: 048
     Dates: start: 20200711

REACTIONS (4)
  - Malignant melanoma [Unknown]
  - Haemorrhagic diathesis [Unknown]
  - Taste disorder [Not Recovered/Not Resolved]
  - Red blood cell count decreased [Unknown]
